FAERS Safety Report 9041536 (Version 1)
Quarter: 2013Q1

REPORT INFORMATION
  Report Type: Report from Study
  Country: FR (occurrence: FR)
  Receive Date: 20130129
  Receipt Date: 20130129
  Transmission Date: 20140127
  Serious: Yes (Other)
  Sender: FDA-Public Use
  Company Number: FR-GENZYME-CAMP-1002699

PATIENT
  Age: 67 Year
  Sex: Male

DRUGS (1)
  1. CAMPATH [Suspect]
     Indication: T-CELL LYMPHOMA REFRACTORY
     Dosage: 30 MG, 3X/W FOR 12 MONTHS
     Route: 065
     Dates: end: 20130121

REACTIONS (2)
  - Bone marrow tumour cell infiltration [Unknown]
  - Thrombocytopenia [Unknown]
